FAERS Safety Report 15749844 (Version 2)
Quarter: 2019Q2

REPORT INFORMATION
  Report Type: Spontaneous
  Country: US (occurrence: US)
  Receive Date: 20181221
  Receipt Date: 20190527
  Transmission Date: 20190711
  Serious: Yes (Other)
  Sender: FDA-Public Use
  Company Number: US-ASTRAZENECA-2018SF67191

PATIENT
  Sex: Female
  Weight: 63.5 kg

DRUGS (26)
  1. NEXIUM [Suspect]
     Active Substance: ESOMEPRAZOLE MAGNESIUM
     Route: 048
     Dates: start: 2001, end: 2014
  2. NEXIUM [Suspect]
     Active Substance: ESOMEPRAZOLE MAGNESIUM
     Dosage: 40 MG DAILY
     Route: 048
     Dates: start: 2006, end: 2014
  3. TRAZODONE [Concomitant]
     Active Substance: TRAZODONE HYDROCHLORIDE
  4. DIOVAN [Concomitant]
     Active Substance: VALSARTAN
  5. METOPROLOL. [Concomitant]
     Active Substance: METOPROLOL
  6. TRAMADOL. [Concomitant]
     Active Substance: TRAMADOL
  7. REQUIP [Concomitant]
     Active Substance: ROPINIROLE HYDROCHLORIDE
  8. RANITIDINE. [Concomitant]
     Active Substance: RANITIDINE
  9. LISINOPRIL. [Concomitant]
     Active Substance: LISINOPRIL
  10. PRAVASTATIN. [Concomitant]
     Active Substance: PRAVASTATIN
  11. AMOXICILLIN. [Concomitant]
     Active Substance: AMOXICILLIN
  12. PROAIR HFA [Concomitant]
     Active Substance: ALBUTEROL SULFATE
  13. CELEBREX [Concomitant]
     Active Substance: CELECOXIB
  14. GEMFIBROZIL. [Concomitant]
     Active Substance: GEMFIBROZIL
  15. ROPINIROLE. [Concomitant]
     Active Substance: ROPINIROLE
  16. PREMARIN [Concomitant]
     Active Substance: ESTROGENS, CONJUGATED
  17. HYOSCYAMINE. [Concomitant]
     Active Substance: HYOSCYAMINE
  18. PREVACID [Suspect]
     Active Substance: LANSOPRAZOLE
     Route: 065
     Dates: start: 2001, end: 2003
  19. TOPROL XL [Concomitant]
     Active Substance: METOPROLOL SUCCINATE
  20. LISINOPRIL. [Concomitant]
     Active Substance: LISINOPRIL
  21. PRAVASTATIN. [Concomitant]
     Active Substance: PRAVASTATIN
  22. LEVOFLOXACIN. [Concomitant]
     Active Substance: LEVOFLOXACIN
  23. OMEPRAZOLE. [Suspect]
     Active Substance: OMEPRAZOLE
     Dosage: 40 MG DAILY
     Route: 065
     Dates: start: 2009, end: 2009
  24. ACIPHEX [Suspect]
     Active Substance: RABEPRAZOLE SODIUM
     Dosage: 40 MG DAILY
     Route: 065
     Dates: start: 2005
  25. GABAPENTIN. [Concomitant]
     Active Substance: GABAPENTIN
  26. GEMFIBROZIL. [Concomitant]
     Active Substance: GEMFIBROZIL

REACTIONS (2)
  - Acute kidney injury [Not Recovered/Not Resolved]
  - Chronic kidney disease [Not Recovered/Not Resolved]
